FAERS Safety Report 24468198 (Version 2)
Quarter: 2025Q2

REPORT INFORMATION
  Report Type: Spontaneous
  Country: US (occurrence: None)
  Receive Date: 20241018
  Receipt Date: 20250423
  Transmission Date: 20250716
  Serious: No
  Sender: INCYTE
  Company Number: US-INCYTE CORPORATION-2024IN010762

PATIENT
  Age: 83 Year

DRUGS (2)
  1. JAKAFI [Suspect]
     Active Substance: RUXOLITINIB
     Indication: Polycythaemia vera
     Dosage: 5 MILLIGRAM, BID
  2. JAKAFI [Suspect]
     Active Substance: RUXOLITINIB
     Dosage: 5 MILLIGRAM, BID

REACTIONS (10)
  - Dyspepsia [Unknown]
  - Faeces hard [Unknown]
  - Arthralgia [Unknown]
  - Neurological symptom [Unknown]
  - Laboratory test abnormal [Unknown]
  - Arthralgia [Unknown]
  - Skin discolouration [Unknown]
  - Anxiety [Unknown]
  - Frustration tolerance decreased [Unknown]
  - Diarrhoea [Unknown]
